FAERS Safety Report 24306112 (Version 1)
Quarter: 2024Q3

REPORT INFORMATION
  Report Type: Spontaneous
  Country: CN (occurrence: CN)
  Receive Date: 20240911
  Receipt Date: 20240911
  Transmission Date: 20241016
  Serious: Yes (Hospitalization, Other)
  Sender: CHEPLAPHARM
  Company Number: CN-CHEPLA-2024011570

PATIENT
  Age: 70 Year
  Sex: Male
  Weight: 76 kg

DRUGS (2)
  1. CAPECITABINE [Suspect]
     Active Substance: CAPECITABINE
     Indication: Rectal cancer
     Dosage: APPROVAL NO. GYZZ H20073024, 1.0G IN THE MORNING AND 1.5G IN THE EVENING, D1-D10, Q2W CHEMOTHERAPY.
     Route: 048
     Dates: start: 20240717, end: 20240726
  2. BEVACIZUMAB [Suspect]
     Active Substance: BEVACIZUMAB
     Indication: Rectal cancer
     Dosage: APPROVAL NO. GYZZ S20190040, ONCE EVERY 14 DAYS, D1, Q2W
     Route: 042
     Dates: start: 20240716, end: 20240716

REACTIONS (3)
  - Thrombocytopenia [Recovering/Resolving]
  - Gingival bleeding [Recovered/Resolved]
  - White blood cell count decreased [Recovering/Resolving]

NARRATIVE: CASE EVENT DATE: 20240729
